FAERS Safety Report 10176092 (Version 1)
Quarter: 2014Q2

REPORT INFORMATION
  Report Type: Spontaneous
  Country: US (occurrence: US)
  Receive Date: 20140516
  Receipt Date: 20140516
  Transmission Date: 20141212
  Serious: No
  Sender: FDA-Public Use
  Company Number: US-PFIZER INC-2014132102

PATIENT
  Sex: Female

DRUGS (3)
  1. LYRICA [Suspect]
     Dosage: UNK
  2. ATIVAN [Concomitant]
     Dosage: UNK
  3. DILAUDID [Concomitant]
     Dosage: 2 MG, UNK

REACTIONS (2)
  - Abnormal behaviour [Unknown]
  - Aggression [Unknown]
